FAERS Safety Report 10386498 (Version 1)
Quarter: 2014Q3

REPORT INFORMATION
  Report Type: Spontaneous
  Country: US (occurrence: US)
  Receive Date: 20140815
  Receipt Date: 20140815
  Transmission Date: 20150326
  Serious: No
  Sender: FDA-Public Use
  Company Number: US-009507513-1407USA014205

PATIENT
  Weight: 86.62 kg

DRUGS (1)
  1. NEXPLANON [Suspect]
     Active Substance: ETONOGESTREL
     Dosage: UNK
     Route: 059

REACTIONS (4)
  - Medical device complication [Unknown]
  - Device dislocation [Unknown]
  - No adverse event [Unknown]
  - Device deployment issue [Unknown]

NARRATIVE: CASE EVENT DATE: 20140730
